FAERS Safety Report 13934919 (Version 3)
Quarter: 2018Q1

REPORT INFORMATION
  Report Type: Report from Study
  Country: None (occurrence: US)
  Receive Date: 20170905
  Receipt Date: 20180309
  Transmission Date: 20180508
  Serious: Yes (Hospitalization, Other)
  Sender: FDA-Public Use
  Company Number: US-ABBVIE-17K-163-1911830-00

PATIENT
  Sex: Female

DRUGS (2)
  1. HUMIRA [Suspect]
     Active Substance: ADALIMUMAB
     Dosage: DOSE INCREASED
     Route: 058
  2. HUMIRA [Suspect]
     Active Substance: ADALIMUMAB
     Indication: CROHN^S DISEASE
     Route: 058

REACTIONS (11)
  - Vomiting [Unknown]
  - Crohn^s disease [Unknown]
  - Frequent bowel movements [Recovering/Resolving]
  - Cardiovascular disorder [Not Recovered/Not Resolved]
  - Dyspnoea [Recovered/Resolved]
  - Dermal cyst [Not Recovered/Not Resolved]
  - Inflammatory marker increased [Recovering/Resolving]
  - Haemorrhoidal haemorrhage [Unknown]
  - Vertigo [Unknown]
  - Asthenia [Unknown]
  - Drug effect incomplete [Unknown]

NARRATIVE: CASE EVENT DATE: 2017
